FAERS Safety Report 6879570-X (Version None)
Quarter: 2010Q3

REPORT INFORMATION
  Report Type: 
  Country: None (occurrence: None)
  Receive Date: 20100728
  Receipt Date: 20100716
  Transmission Date: 20110219
  Serious: Yes (Hospitalization)
  Sender: FDA-Public Use
  Company Number: IE-NOVOPROD-310049

PATIENT
  Sex: Male
  Weight: 94 kg

DRUGS (13)
  1. VICTOZA [Suspect]
     Indication: TYPE 2 DIABETES MELLITUS
     Dosage: 0.6 MG, QD
     Route: 058
     Dates: start: 20100518, end: 20100524
  2. VICTOZA [Suspect]
     Dosage: 1.2 MG, QD
     Route: 058
     Dates: start: 20100525, end: 20100531
  3. VICTOZA [Suspect]
     Dosage: 1.8 MG, QD
     Route: 058
     Dates: start: 20100601, end: 20100607
  4. VICTOZA [Suspect]
     Dosage: 1.2 MG, QD
     Route: 058
     Dates: start: 20100608, end: 20100608
  5. VICTOZA [Suspect]
     Dosage: 0.6 MG, QD
     Route: 058
     Dates: start: 20100609, end: 20100609
  6. COVERSYL PLUS [Concomitant]
     Indication: HYPERTENSION
  7. EMCOR [Concomitant]
     Indication: HYPERTENSION
     Dosage: 10MG
  8. CARDURA [Concomitant]
     Indication: HYPERTENSION
     Dosage: 4MG
  9. CARDURA [Concomitant]
     Indication: ANGINA PECTORIS
  10. NUSEALS [Concomitant]
     Indication: HYPERTENSION
  11. METFORMIN HYDROCHLORIDE [Concomitant]
     Indication: TYPE 2 DIABETES MELLITUS
     Dosage: 3 GRAMS
  12. DIAMICRON [Concomitant]
     Indication: HYPERTENSION
     Dosage: 120MG
  13. LIPITOR [Concomitant]
     Dosage: 20MG

REACTIONS (7)
  - DYSPEPSIA [None]
  - DYSPHONIA [None]
  - FATIGUE [None]
  - HEPATITIS [None]
  - HICCUPS [None]
  - PANCREATIC CARCINOMA [None]
  - WEIGHT DECREASED [None]
